FAERS Safety Report 7206504-0 (Version None)
Quarter: 2011Q1

REPORT INFORMATION
  Report Type: 
  Country: None (occurrence: None)
  Receive Date: 20110103
  Receipt Date: 20101221
  Transmission Date: 20110831
  Serious: Yes (Hospitalization)
  Sender: FDA-Public Use
  Company Number: NL-JNJFOC-20101207168

PATIENT
  Sex: Male
  Weight: 70 kg

DRUGS (6)
  1. TOPAMAX [Suspect]
     Indication: NIGHTMARE
     Dosage: DOSE SCHEDULED REDUCED IN STEPS OF 12.5MG
     Route: 048
  2. TOPAMAX [Suspect]
     Route: 048
  3. TOPAMAX [Suspect]
     Dosage: DOSE SCHEDULED REDUCED IN STEPS OF 12.5MG
     Route: 048
  4. TOPAMAX [Suspect]
     Route: 048
  5. TOPAMAX [Suspect]
     Dosage: 25 MG TABLETS, 7 TABLETS IN ONE DAY
     Route: 048
  6. TOPAMAX [Suspect]
     Dosage: DOSE SCHEDULED REDUCED IN STEPS OF 12.5MG
     Route: 048

REACTIONS (4)
  - AFFECTIVE DISORDER [None]
  - SUICIDAL IDEATION [None]
  - WITHDRAWAL SYNDROME [None]
  - DRUG PRESCRIBING ERROR [None]
